FAERS Safety Report 4703007-X (Version None)
Quarter: 2005Q2

REPORT INFORMATION
  Report Type: 
  Country: None (occurrence: None)
  Receive Date: 20050628
  Receipt Date: 20050628
  Transmission Date: 20051028
  Serious: Yes (Disabling, Other)
  Sender: FDA-Public Use
  Company Number: None

PATIENT
  Sex: Female
  Weight: 49.8957 kg

DRUGS (2)
  1. VIOXX [Suspect]
     Dosage: 1 TIMES A DA Y
  2. CLARITIN [Suspect]

REACTIONS (9)
  - CEREBROVASCULAR ACCIDENT [None]
  - DRUG HYPERSENSITIVITY [None]
  - HYPERTENSION [None]
  - KIDNEY INFECTION [None]
  - MICTURITION DISORDER [None]
  - MYOCARDIAL INFARCTION [None]
  - RENAL DISORDER [None]
  - RESPIRATORY TRACT INFECTION [None]
  - URINARY INCONTINENCE [None]
